FAERS Safety Report 4888783-8 (Version None)
Quarter: 2005Q4

REPORT INFORMATION
  Report Type: 
  Country: None (occurrence: None)
  Receive Date: 20051215
  Receipt Date: 20050801
  Transmission Date: 20060501
  Serious: Yes (Other)
  Sender: FDA-Public Use
  Company Number: 2005103455

PATIENT
  Age: 49 Year
  Sex: Male
  Weight: 72.5755 kg

DRUGS (1)
  1. BEXTRA [Suspect]
     Indication: PERIPHERAL NERVE INJURY
     Dosage: 40 MG (20 MG, 2 IN 1 D), ORAL
     Route: 048
     Dates: start: 20031001

REACTIONS (15)
  - CARDIAC FLUTTER [None]
  - CARPAL TUNNEL SYNDROME [None]
  - COLONOSCOPY [None]
  - CONTUSION [None]
  - ELECTROCARDIOGRAM T WAVE ABNORMAL [None]
  - FEELING COLD [None]
  - GASTROINTESTINAL INFLAMMATION [None]
  - HEART RATE DECREASED [None]
  - HYPOTHYROIDISM [None]
  - NERVOUS SYSTEM DISORDER [None]
  - PAIN IN EXTREMITY [None]
  - PNEUMONIA [None]
  - POLYP COLORECTAL [None]
  - RASH [None]
  - SINUS BRADYCARDIA [None]
